FAERS Safety Report 21656298 (Version 1)
Quarter: 2022Q4

REPORT INFORMATION
  Report Type: Spontaneous
  Country: US (occurrence: US)
  Receive Date: 20221129
  Receipt Date: 20221129
  Transmission Date: 20230112
  Serious: No
  Sender: FDA-Public Use
  Company Number: US-LA JOLLA PHARMACEUTICAL COMPANY-0000366

PATIENT

DRUGS (15)
  1. GIAPREZA [Suspect]
     Active Substance: ANGIOTENSIN II
     Indication: Septic shock
     Dosage: 20 NG/KG/MIN
  2. NOREPINEPHRINE [Concomitant]
     Active Substance: NOREPINEPHRINE
     Indication: Septic shock
     Dosage: 0.75 ?G/KG/MIN
  3. NOREPINEPHRINE [Concomitant]
     Active Substance: NOREPINEPHRINE
     Dosage: 0.2 ?G/KG/MIN FOR 11 DAYS
  4. VASOPRESSIN [Concomitant]
     Active Substance: VASOPRESSIN
     Indication: Septic shock
     Dosage: 0.04 UNITS/MIN
  5. EPINEPHRINE [Concomitant]
     Active Substance: EPINEPHRINE
     Dosage: 0.04 ?G/KG/MIN
  6. MEROPENEM [Concomitant]
     Active Substance: MEROPENEM
  7. LINEZOLID [Concomitant]
     Active Substance: LINEZOLID
  8. MICAFUNGIN [Concomitant]
     Active Substance: MICAFUNGIN
  9. DOXYCYCLINE [Concomitant]
     Active Substance: DOXYCYCLINE
  10. VALGANCICLOVIR [Concomitant]
     Active Substance: VALGANCICLOVIR
  11. PREDNISONE [Concomitant]
     Active Substance: PREDNISONE
     Indication: Immunosuppression
  12. HYDROCORTISONE [Concomitant]
     Active Substance: HYDROCORTISONE
  13. FLUDROCORTISONE [Concomitant]
     Active Substance: FLUDROCORTISONE
  14. METHYLENE BLUE [Concomitant]
     Active Substance: METHYLENE BLUE
  15. HYDROXOCOBALAMIN [Concomitant]
     Active Substance: HYDROXOCOBALAMIN

REACTIONS (2)
  - Headache [Recovered/Resolved]
  - Abdominal pain [Recovered/Resolved]
